FAERS Safety Report 5782233-5 (Version None)
Quarter: 2008Q2

REPORT INFORMATION
  Report Type: 
  Country: None (occurrence: None)
  Receive Date: 20080618
  Receipt Date: 20080606
  Transmission Date: 20081010
  Serious: Yes (Death, Hospitalization)
  Sender: FDA-Public Use
  Company Number: 2008AL006600

PATIENT
  Age: 75 Year
  Sex: Male

DRUGS (12)
  1. METFORMIN HYDROCHLORIDE TABLETS, 500 MG (PUREPAC) (METFORMIN HYDROCHLO [Suspect]
     Indication: TYPE 2 DIABETES MELLITUS
     Dosage: 500 MG
     Dates: start: 20050408
  2. COZAAR [Concomitant]
  3. SERTRALINE [Concomitant]
  4. SIMVASTATIN [Concomitant]
  5. SELO-ZOK [Concomitant]
  6. ACETAMINOPHEN [Concomitant]
  7. KININ [Concomitant]
  8. GLIBENESE [Concomitant]
  9. FURIX [Concomitant]
  10. BETOLVEX [Concomitant]
  11. PRIMPERAN TAB [Concomitant]
  12. LOPRAMIDE [Concomitant]

REACTIONS (3)
  - BLOOD CREATININE INCREASED [None]
  - HYPOTENSION [None]
  - METABOLIC ACIDOSIS [None]
